FAERS Safety Report 7749144-7 (Version None)
Quarter: 2011Q3

REPORT INFORMATION
  Report Type: 
  Country: None (occurrence: None)
  Receive Date: 20110914
  Receipt Date: 20110908
  Transmission Date: 20111222
  Serious: No
  Sender: FDA-Public Use
  Company Number: US-PFIZER INC-2011211909

PATIENT
  Sex: Male
  Weight: 84.354 kg

DRUGS (2)
  1. SUTENT [Suspect]
     Indication: RENAL CANCER
     Dosage: 50 MG, 4 WEEKS ON AND THEN 2 WEEKS OFF
     Route: 048
  2. LISINOPRIL AND HYDROCHLOROTHIAZIDE [Concomitant]
     Dosage: 20-25 MG, UNK
     Route: 048

REACTIONS (3)
  - NAUSEA [None]
  - DECREASED APPETITE [None]
  - FATIGUE [None]
